FAERS Safety Report 24531472 (Version 1)
Quarter: 2024Q4

REPORT INFORMATION
  Report Type: Report from Study
  Country: US (occurrence: US)
  Receive Date: 20241022
  Receipt Date: 20241022
  Transmission Date: 20250115
  Serious: No
  Sender: ROCHE
  Company Number: US-ROCHE-3510156

PATIENT

DRUGS (2)
  1. DORNASE ALFA [Suspect]
     Active Substance: DORNASE ALFA
     Indication: Pleural effusion
     Route: 065
  2. ALTEPLASE [Suspect]
     Active Substance: ALTEPLASE
     Indication: Pleural effusion
     Route: 065

REACTIONS (1)
  - Haemothorax [Recovered/Resolved]
